FAERS Safety Report 6091631-4 (Version None)
Quarter: 2009Q1

REPORT INFORMATION
  Report Type: 
  Country: None (occurrence: None)
  Receive Date: 20090225
  Receipt Date: 20080303
  Transmission Date: 20090719
  Serious: No
  Sender: FDA-Public Use
  Company Number: A0714653A

PATIENT
  Age: 42 Year
  Sex: Male

DRUGS (2)
  1. VALTREX [Suspect]
     Indication: GENITAL HERPES
     Route: 065
  2. HIV ANTIVIRAL AGENTS UNSPECIFIED [Concomitant]

REACTIONS (1)
  - HERPES VIRUS INFECTION [None]
